FAERS Safety Report 4517703-0 (Version None)
Quarter: 2004Q4

REPORT INFORMATION
  Report Type: 
  Country: None (occurrence: None)
  Receive Date: 20041203
  Receipt Date: 20041125
  Transmission Date: 20050328
  Serious: Yes (Hospitalization)
  Sender: FDA-Public Use
  Company Number: FR-BRISTOL-MYERS SQUIBB COMPANY-12776407

PATIENT
  Age: 90 Year
  Sex: Female

DRUGS (8)
  1. APROVEL [Suspect]
     Indication: HYPERTENSION
     Dosage: DOSAGE NOT REPORTED
     Route: 048
     Dates: end: 20040820
  2. LASILIX [Suspect]
     Indication: HYPERTENSION
     Route: 048
  3. FELDENE [Suspect]
     Route: 030
     Dates: start: 20040805, end: 20040820
  4. NSAID [Suspect]
     Indication: PAIN PROPHYLAXIS
     Dosage: RECEIVED 15 DAYS PRIOR TO EVENT
     Dates: start: 20040801
  5. ZYLORIC [Concomitant]
     Indication: VERTIGO
     Dates: end: 20040820
  6. BETASERC [Concomitant]
     Indication: VERTIGO
     Dates: end: 20040820
  7. DIANTALVIC [Concomitant]
     Dosage: 6 CAPS/DAY
     Dates: start: 20040805, end: 20040820
  8. OMEPRAZOLE [Concomitant]
     Dosage: 6 TABS/DAY

REACTIONS (4)
  - ANAEMIA [None]
  - FALL [None]
  - GASTROINTESTINAL HAEMORRHAGE [None]
  - RENAL FAILURE ACUTE [None]
